FAERS Safety Report 5214833-5 (Version None)
Quarter: 2007Q1

REPORT INFORMATION
  Report Type: 
  Country: None (occurrence: None)
  Receive Date: 20070122
  Receipt Date: 20070122
  Transmission Date: 20070707
  Serious: Yes (Other)
  Sender: FDA-Public Use
  Company Number: None

PATIENT
  Age: 1 Year
  Sex: Male
  Weight: 11.3399 kg

DRUGS (1)
  1. PEDIACARE DECONGESTANT + INFANT DROPS PFIZER [Suspect]
     Indication: NASOPHARYNGITIS
     Dosage: CHILDREN UNDER 2 CONSULT DOCTOR
     Dates: start: 20060315, end: 20061231

REACTIONS (6)
  - BALANCE DISORDER [None]
  - INFLUENZA [None]
  - INSOMNIA [None]
  - IRRITABILITY [None]
  - NERVOUSNESS [None]
  - VOMITING [None]
